FAERS Safety Report 9392351 (Version 4)
Quarter: 2014Q4

REPORT INFORMATION
  Report Type: Spontaneous
  Country: FR (occurrence: FR)
  Receive Date: 20130710
  Receipt Date: 20141013
  Transmission Date: 20150529
  Serious: Yes (Death, Hospitalization, Other)
  Sender: FDA-Public Use
  Company Number: FR-ALEXION PHARMACEUTICALS INC.-A201301566

PATIENT

DRUGS (2)
  1. SOLIRIS [Suspect]
     Active Substance: ECULIZUMAB
     Indication: HAEMOLYTIC URAEMIC SYNDROME
     Dosage: 900 MG, QW
     Route: 042
     Dates: start: 20130613, end: 20130627
  2. SOLIRIS [Suspect]
     Active Substance: ECULIZUMAB
     Indication: OFF LABEL USE

REACTIONS (9)
  - Drug ineffective [Fatal]
  - Disseminated intravascular coagulation [Fatal]
  - Off label use [Unknown]
  - Left ventricular dysfunction [Unknown]
  - Transient ischaemic attack [Not Recovered/Not Resolved]
  - Ischaemic cardiomyopathy [Unknown]
  - Pulmonary oedema [Not Recovered/Not Resolved]
  - Cerebrovascular accident [Fatal]
  - Acute respiratory distress syndrome [Unknown]

NARRATIVE: CASE EVENT DATE: 20130618
